FAERS Safety Report 13075238 (Version 2)
Quarter: 2017Q1

REPORT INFORMATION
  Report Type: Spontaneous
  Country: US (occurrence: US)
  Receive Date: 20161230
  Receipt Date: 20170109
  Transmission Date: 20170428
  Serious: No
  Sender: FDA-Public Use
  Company Number: US-VERTEX PHARMACEUTICALS-2016-007294

PATIENT
  Age: 18 Year
  Sex: Male

DRUGS (20)
  1. ORKAMBI [Suspect]
     Active Substance: IVACAFTOR\LUMACAFTOR
     Indication: CYSTIC FIBROSIS
     Dosage: 400/250 MG, BID
     Route: 048
     Dates: start: 20150721
  2. IPRATROPIUM [Concomitant]
     Active Substance: IPRATROPIUM
  3. SIROLIMUS. [Concomitant]
     Active Substance: SIROLIMUS
     Dosage: TAKE FOUR TABLET(S) (8 MG TOTAL) BY MOUTH ONCE A DAY.
  4. COLISTIN SULFATE [Concomitant]
     Active Substance: COLISTIN SULFATE
     Dosage: 75 MG BY INHALED ROUTE 2 TIMES DAILY. ALTERNATING MONTHS
  5. LIPASE [Concomitant]
     Active Substance: LIPASE
  6. CHOLECALCIFEROL [Concomitant]
     Active Substance: CHOLECALCIFEROL
     Dosage: TAKE 1 CAPSULE(S) BY MOUTH ONCE A DAY.
  7. AZITHROMYCIN ANHYDROUS. [Concomitant]
     Active Substance: AZITHROMYCIN ANHYDROUS
     Dosage: TAKE I TABLET THREE TIMES WEEKLY
  8. SODIUM CHLORIDE. [Concomitant]
     Active Substance: SODIUM CHLORIDE
     Dosage: 4 ML BY INHALED ROUTE 2 TIMES DAILY. MAY INCREASE TO FOUR
  9. FLOVENT [Concomitant]
     Active Substance: FLUTICASONE PROPIONATE
     Dosage: INHALE 2 PUFFS TWICE A DAY
  10. FLUTICASONE. [Concomitant]
     Active Substance: FLUTICASONE
     Dosage: SPRAY I SPRAY(S) IN BOTH NOSTRILS ONCE A DAY. (PATIENT TAKING DIFFERENTLY: SPRAY 2 SPRAY(S) IN BOTH
  11. COTRIMOXAZOLE [Concomitant]
     Active Substance: SULFAMETHOXAZOLE\TRIMETHOPRIM
     Dosage: 1 DF, BID
  12. LISINOPRIL. [Concomitant]
     Active Substance: LISINOPRIL
     Dosage: TAKE 1/2 TABLET BY MOUTH EVERY DAY
  13. TOBRAMYCIN. [Concomitant]
     Active Substance: TOBRAMYCIN
  14. FERROUS SULFATE. [Concomitant]
     Active Substance: FERROUS SULFATE
  15. PHYTONADIONE. [Concomitant]
     Active Substance: PHYTONADIONE
     Dosage: TAKE 1 TABLET(S) (5 MG TOTAL) BY MOUTH ONCE A DAY.
  16. DORNASE ALFA [Concomitant]
     Active Substance: DORNASE ALFA
     Dosage: 2.5 ML (2.5 MG TOTAL) BY INHALED ROUTE ONCE A DAY.
  17. OMEPRAZOLE. [Concomitant]
     Active Substance: OMEPRAZOLE
     Dosage: TAKE ONE CAPSULE(S) (20 MG TOTAL) BY MOUTH 2 TIMES DAILY.
  18. ALBUTEROL HFA [Concomitant]
     Active Substance: ALBUTEROL SULFATE
     Dosage: 2 PUFF(S) BY INHALED ROUTE 2 TIMES DAILY. MAY INCREASE TO 4
  19. CREON [Concomitant]
     Active Substance: PANCRELIPASE AMYLASE\PANCRELIPASE LIPASE\PANCRELIPASE PROTEASE
  20. MULTIPLE VITAMINS WITH MINERALS [Concomitant]
     Active Substance: MINERALS\VITAMINS

REACTIONS (1)
  - Infective pulmonary exacerbation of cystic fibrosis [Unknown]

NARRATIVE: CASE EVENT DATE: 20161219
